FAERS Safety Report 7689094-8 (Version None)
Quarter: 2011Q3

REPORT INFORMATION
  Report Type: 
  Country: None (occurrence: None)
  Receive Date: 20110817
  Receipt Date: 20110811
  Transmission Date: 20111222
  Serious: Yes (Other)
  Sender: FDA-Public Use
  Company Number: JP-MERCK-1106USA01518

PATIENT
  Age: 74 Year
  Sex: Female

DRUGS (6)
  1. JANUVIA [Suspect]
     Route: 048
     Dates: start: 20100419
  2. NIZATIDINE [Concomitant]
     Route: 065
  3. PRAVASTATIN SODIUM [Concomitant]
     Route: 065
  4. ACTOS [Concomitant]
     Route: 065
  5. ULCERLMIN [Concomitant]
     Route: 065
  6. AMARYL [Concomitant]
     Route: 065

REACTIONS (4)
  - PERIPHERAL COLDNESS [None]
  - MALAISE [None]
  - NOCTURIA [None]
  - POLLAKIURIA [None]
